FAERS Safety Report 5828880-3 (Version None)
Quarter: 2008Q3

REPORT INFORMATION
  Report Type: 
  Country: None (occurrence: None)
  Receive Date: 20080731
  Receipt Date: 20080725
  Transmission Date: 20090109
  Serious: Yes (Hospitalization)
  Sender: FDA-Public Use
  Company Number: LT-BAYER-200822958GPV

PATIENT
  Age: 72 Year
  Sex: Female
  Weight: 87 kg

DRUGS (8)
  1. MOXIFLOXACIN HCL [Suspect]
     Indication: ABDOMINAL INFECTION
     Route: 042
     Dates: start: 20080701, end: 20080714
  2. AMPICILLIN [Concomitant]
     Indication: INFECTION PROPHYLAXIS
     Route: 042
     Dates: start: 20080701, end: 20080701
  3. GENTAMYCIN SULFATE [Concomitant]
     Indication: INFECTION PROPHYLAXIS
     Route: 042
     Dates: start: 20080701, end: 20080701
  4. RINGER'S [Concomitant]
     Indication: DETOXIFICATION
     Route: 042
     Dates: start: 20080701
  5. DEXTROSE [Concomitant]
     Indication: BLOOD GLUCOSE ABNORMAL
     Route: 042
     Dates: start: 20080701
  6. SODIUM CHLORIDE 0.9% [Concomitant]
     Indication: DETOXIFICATION
     Route: 042
     Dates: start: 20080701
  7. POTASSIUM CHLORIDE [Concomitant]
     Indication: ELECTROLYTE IMBALANCE
     Route: 042
     Dates: start: 20080701, end: 20080708
  8. ACTRAPID [Concomitant]
     Indication: BLOOD GLUCOSE ABNORMAL
     Route: 042
     Dates: start: 20080701

REACTIONS (1)
  - POSTOPERATIVE WOUND INFECTION [None]
